FAERS Safety Report 7774104-X (Version None)
Quarter: 2011Q3

REPORT INFORMATION
  Report Type: 
  Country: None (occurrence: None)
  Receive Date: 20110923
  Receipt Date: 20110912
  Transmission Date: 20111222
  Serious: Yes (Other)
  Sender: FDA-Public Use
  Company Number: US-JNJFOC-20110906721

PATIENT
  Sex: Female

DRUGS (1)
  1. LISTERINE WHITENING PLUS RESTORING FLUORIDE RINSE CLEAN MINT [Suspect]
     Indication: DENTAL CARE
     Route: 048
     Dates: start: 20110501

REACTIONS (5)
  - ORAL DISCOMFORT [None]
  - SKIN EXFOLIATION [None]
  - SWOLLEN TONGUE [None]
  - DYSPHAGIA [None]
  - TONGUE EXFOLIATION [None]
